FAERS Safety Report 12195792 (Version 1)
Quarter: 2016Q1

REPORT INFORMATION
  Report Type: Spontaneous
  Country: DE (occurrence: DE)
  Receive Date: 20160321
  Receipt Date: 20160321
  Transmission Date: 20160526
  Serious: Yes (Other)
  Sender: FDA-Public Use
  Company Number: DE-BAYER-2016-054379

PATIENT
  Age: 76 Year
  Sex: Female

DRUGS (1)
  1. ASPIRIN PROTECT [Suspect]
     Active Substance: ASPIRIN
     Dosage: 100 MG, ABOUT 3 WEEKS
     Dates: start: 201602

REACTIONS (2)
  - Intestinal polyp [None]
  - Haematochezia [None]

NARRATIVE: CASE EVENT DATE: 2016
